FAERS Safety Report 5487015-X (Version None)
Quarter: 2007Q4

REPORT INFORMATION
  Report Type: 
  Country: None (occurrence: None)
  Receive Date: 20071016
  Receipt Date: 20071008
  Transmission Date: 20080405
  Serious: Yes (Hospitalization)
  Sender: FDA-Public Use
  Company Number: BR-WYE-H00561907

PATIENT
  Sex: Female

DRUGS (2)
  1. TRIQUILAR-21 [Suspect]
     Indication: ORAL CONTRACEPTION
     Dosage: 1 TABLET; UNKNOWN FREQUENCY
     Route: 048
     Dates: start: 20060101
  2. TRIQUILAR-21 [Suspect]
     Indication: MENSTRUATION IRREGULAR

REACTIONS (3)
  - GASTROOESOPHAGEAL REFLUX DISEASE [None]
  - SINUSITIS [None]
  - VOMITING [None]
